FAERS Safety Report 5361611-2 (Version None)
Quarter: 2007Q2

REPORT INFORMATION
  Report Type: 
  Country: None (occurrence: None)
  Receive Date: 20070530
  Receipt Date: 20070103
  Transmission Date: 20071010
  Serious: No
  Sender: FDA-Public Use
  Company Number: 2007PV027777

PATIENT
  Age: 77 Year
  Sex: Male
  Weight: 98.4306 kg

DRUGS (11)
  1. BYETTA [Suspect]
     Indication: DIABETES MELLITUS NON-INSULIN-DEPENDENT
     Dosage: 10;5 MCG;BID;SC
     Route: 058
     Dates: start: 20061001, end: 20061101
  2. BYETTA [Suspect]
     Indication: DIABETES MELLITUS NON-INSULIN-DEPENDENT
     Dosage: 10;5 MCG;BID;SC
     Route: 058
     Dates: start: 20061101
  3. METFORMIN ER [Concomitant]
  4. AMARYL [Concomitant]
  5. LOPID [Concomitant]
  6. ALLOPURINOL [Concomitant]
  7. IRON [Concomitant]
  8. COZAAR [Concomitant]
  9. PLAVIX [Concomitant]
  10. TERAZOSIN HCL [Concomitant]
  11. ANUCORT-HC [Concomitant]

REACTIONS (6)
  - ARTHRALGIA [None]
  - ASTHENIA [None]
  - DECREASED APPETITE [None]
  - DIZZINESS [None]
  - EPISTAXIS [None]
  - HAEMATOCHEZIA [None]
